FAERS Safety Report 11188828 (Version 1)
Quarter: 2015Q2

REPORT INFORMATION
  Report Type: Spontaneous
  Country: CN (occurrence: CN)
  Receive Date: 20150615
  Receipt Date: 20150615
  Transmission Date: 20150821
  Serious: Yes (Other)
  Sender: FDA-Public Use
  Company Number: CN-JNJFOC-20150602179

PATIENT
  Sex: Female

DRUGS (4)
  1. DOXORUBICIN [Suspect]
     Active Substance: DOXORUBICIN
     Indication: TRIPLE NEGATIVE BREAST CANCER
     Route: 042
  2. G-CSF [Concomitant]
     Active Substance: GRANULOCYTE COLONY-STIMULATING FACTOR NOS
     Route: 065
  3. CYCLOPHOSPHAMIDE. [Suspect]
     Active Substance: CYCLOPHOSPHAMIDE
     Indication: TRIPLE NEGATIVE BREAST CANCER
     Route: 065
  4. DOCETAXEL. [Suspect]
     Active Substance: DOCETAXEL
     Indication: TRIPLE NEGATIVE BREAST CANCER
     Route: 065

REACTIONS (13)
  - Febrile neutropenia [Unknown]
  - Vomiting [Unknown]
  - Infection [Unknown]
  - Diarrhoea [Unknown]
  - Neutropenia [Unknown]
  - Alopecia [Unknown]
  - Nausea [Unknown]
  - Bone marrow failure [Unknown]
  - Hepatic function abnormal [Unknown]
  - Renal impairment [Unknown]
  - Myalgia [Unknown]
  - Constipation [Unknown]
  - Stomatitis [Unknown]
